FAERS Safety Report 9312431 (Version 2)
Quarter: 2013Q2

REPORT INFORMATION
  Report Type: Spontaneous
  Country: TW (occurrence: TW)
  Receive Date: 20130528
  Receipt Date: 20130605
  Transmission Date: 20140414
  Serious: Yes (Hospitalization, Other)
  Sender: FDA-Public Use
  Company Number: TW-JNJFOC-20130513188

PATIENT
  Age: 44 Year
  Sex: Female

DRUGS (2)
  1. ULTRACET [Suspect]
     Indication: JOINT INJURY
     Dosage: NUMBER OF DOSAGES: 2, INTERVAL: 1 DAY
     Route: 048
     Dates: start: 20130403
  2. MEPHENOXALONE [Suspect]
     Indication: JOINT INJURY
     Dosage: DOSE: 200 MG
     Route: 048
     Dates: start: 20130403

REACTIONS (9)
  - Systemic lupus erythematosus [Unknown]
  - Eye swelling [Recovered/Resolved]
  - Hypersensitivity [Recovered/Resolved]
  - Nausea [Recovered/Resolved]
  - Arthralgia [Recovered/Resolved]
  - Headache [Recovered/Resolved]
  - Eye pain [Recovered/Resolved]
  - Asthenia [Recovered/Resolved]
  - Influenza [Recovered/Resolved]
